FAERS Safety Report 7455104-6 (Version None)
Quarter: 2011Q2

REPORT INFORMATION
  Report Type: 
  Country: None (occurrence: None)
  Receive Date: 20110503
  Receipt Date: 20110427
  Transmission Date: 20111010
  Serious: Yes (Death)
  Sender: FDA-Public Use
  Company Number: IT-TEVA-279083ISR

PATIENT
  Sex: Female

DRUGS (9)
  1. WARFARIN SODIUM [Suspect]
     Route: 048
     Dates: start: 20070101, end: 20101207
  2. OMEPRAZOLE [Concomitant]
     Dosage: 20 MILLIGRAM; 20MG
  3. GLYCERYL TRINITRATE [Concomitant]
  4. CLARITHROMYCIN [Interacting]
     Indication: BRONCHOPNEUMONIA
     Dosage: 1 GRAM; 1GR
     Route: 048
     Dates: start: 20101206, end: 20101210
  5. FUROSEMIDE [Concomitant]
  6. SPIRONOLACTONE [Concomitant]
     Dosage: 25 MILLIGRAM; 25MG
     Route: 048
  7. ALLOPURINOL [Interacting]
     Indication: HYPERURICAEMIA
     Dosage: 300 MILLIGRAM; 300MG
     Route: 048
     Dates: start: 20100101, end: 20101210
  8. CEFTRIAXONE SODIUM [Concomitant]
     Dosage: 2 GRAM; 2GR
     Route: 042
  9. BISOPROLOL FUMARATE [Concomitant]
     Dosage: 2.5 MILLIGRAM; 2.5MG
     Route: 048

REACTIONS (2)
  - INTERNATIONAL NORMALISED RATIO INCREASED [None]
  - CARDIAC FAILURE [None]
